FAERS Safety Report 16007373 (Version 2)
Quarter: 2019Q2

REPORT INFORMATION
  Report Type: Spontaneous
  Country: FR (occurrence: FR)
  Receive Date: 20190226
  Receipt Date: 20190404
  Transmission Date: 20190711
  Serious: Yes (Hospitalization)
  Sender: FDA-Public Use
  Company Number: FR-TEVA-2019-FR-1015354

PATIENT
  Age: 92 Year
  Sex: Male
  Weight: 64.2 kg

DRUGS (3)
  1. INVANZ [Suspect]
     Active Substance: ERTAPENEM SODIUM
     Dosage: 1 GRAM DAILY;
     Route: 058
     Dates: start: 20190111, end: 20190116
  2. ESCITALOPRAM ARROW 5 MG, COMPRIM? PELLICUL? [Suspect]
     Active Substance: ESCITALOPRAM OXALATE
     Indication: MENTAL DISORDER
     Dosage: 1 DOSAGE FORMS DAILY;
     Route: 048
     Dates: start: 20190108, end: 20190123
  3. TRIACEFAN [Suspect]
     Active Substance: CEFTRIAXONE
     Dosage: 1 GRAM DAILY;
     Route: 058
     Dates: start: 20190109, end: 20190111

REACTIONS (3)
  - Leukopenia [Recovered/Resolved]
  - Condition aggravated [Unknown]
  - Thrombocytopenia [Recovered/Resolved]

NARRATIVE: CASE EVENT DATE: 201901
